FAERS Safety Report 9868038 (Version 1)
Quarter: 2014Q1

REPORT INFORMATION
  Report Type: Spontaneous
  Country: US (occurrence: None)
  Receive Date: 20140203
  Receipt Date: 20140203
  Transmission Date: 20141002
  Serious: Yes (Other)
  Sender: FDA-Public Use
  Company Number: None

PATIENT
  Age: 80 Year
  Sex: Male
  Weight: 102.7 kg

DRUGS (1)
  1. RITUXAN [Suspect]
     Route: 042
     Dates: start: 20140121

REACTIONS (3)
  - Anaphylactic reaction [None]
  - Hypertension [None]
  - Infusion related reaction [None]
